FAERS Safety Report 5508300-9 (Version None)
Quarter: 2007Q4

REPORT INFORMATION
  Report Type: 
  Country: None (occurrence: None)
  Receive Date: 20071106
  Receipt Date: 20071022
  Transmission Date: 20080405
  Serious: No
  Sender: FDA-Public Use
  Company Number: US-BOEHRINGER INGELHEIM PHARMACEUTICALS, INC.-2007-BP-22138BP

PATIENT
  Sex: Female

DRUGS (12)
  1. CATAPRES-TTS-1 [Suspect]
     Indication: HYPERTENSION
     Route: 061
     Dates: start: 20070801
  2. TIKOSYN [Concomitant]
  3. ALLOPURINOL [Concomitant]
  4. NITROQUICK [Concomitant]
  5. PLAVIX [Concomitant]
  6. POTASSIUM CHLORIDE [Concomitant]
  7. ZEBETA [Concomitant]
  8. METHYLDOPA [Concomitant]
  9. LORA TAB [Concomitant]
  10. FUROSEMIDE [Concomitant]
  11. DIOVAN [Concomitant]
  12. ASPIRIN [Concomitant]

REACTIONS (2)
  - BLOOD PRESSURE FLUCTUATION [None]
  - DRUG EFFECT DECREASED [None]
